FAERS Safety Report 6677198-8 (Version None)
Quarter: 2010Q2

REPORT INFORMATION
  Report Type: 
  Country: None (occurrence: None)
  Receive Date: 20100412
  Receipt Date: 20100325
  Transmission Date: 20101027
  Serious: Yes (Hospitalization, Other)
  Sender: FDA-Public Use
  Company Number: GB-BAYER-200926969GPV

PATIENT
  Age: 54 Year
  Sex: Female

DRUGS (2)
  1. BETAFERON [Suspect]
     Indication: MULTIPLE SCLEROSIS
     Dates: start: 20000101, end: 20090601
  2. BETAFERON [Suspect]

REACTIONS (1)
  - GASTROINTESTINAL CARCINOMA [None]
